FAERS Safety Report 5311232-2 (Version None)
Quarter: 2007Q2

REPORT INFORMATION
  Report Type: 
  Country: None (occurrence: None)
  Receive Date: 20070430
  Receipt Date: 20070423
  Transmission Date: 20071010
  Serious: Yes (Life-Threatening, Hospitalization)
  Sender: FDA-Public Use
  Company Number: PHBS2007ES07209

PATIENT
  Age: 66 Year
  Sex: Male

DRUGS (3)
  1. GLEEVEC [Suspect]
     Indication: ACUTE LYMPHOCYTIC LEUKAEMIA
     Dosage: 400 MG/D
     Route: 048
     Dates: start: 20070322, end: 20070410
  2. METHYLPREDNISOLONE 16MG TAB [Concomitant]
     Route: 065
  3. CHEMOTHERAPEUTICS,OTHER [Concomitant]
     Route: 065

REACTIONS (3)
  - CARDIAC FAILURE [None]
  - CARDIAC FLUTTER [None]
  - ILEUS PARALYTIC [None]
